FAERS Safety Report 4406577-4 (Version None)
Quarter: 2004Q3

REPORT INFORMATION
  Report Type: 
  Country: None (occurrence: None)
  Receive Date: 20040723
  Receipt Date: 20040513
  Transmission Date: 20050211
  Serious: Yes (Hospitalization)
  Sender: FDA-Public Use
  Company Number: FR-GLAXOSMITHKLINE-B0321132B

PATIENT
  Sex: Male
  Weight: 49 kg

DRUGS (1)
  1. SALMETEROL [Suspect]
     Dosage: 50MCG TWICE PER DAY
     Route: 055
     Dates: start: 20010920, end: 20030206

REACTIONS (9)
  - ASPERGILLOSIS [None]
  - CHRONIC OBSTRUCTIVE AIRWAYS DISEASE EXACERBATED [None]
  - EMPHYSEMATOUS BULLA [None]
  - LEUKOCYTOSIS [None]
  - MYCOBACTERIAL INFECTION [None]
  - PNEUMOTHORAX [None]
  - RESPIRATORY DISORDER [None]
  - RESPIRATORY TRACT CONGESTION [None]
  - SPUTUM PURULENT [None]
